FAERS Safety Report 18945517 (Version 1)
Quarter: 2021Q1

REPORT INFORMATION
  Report Type: Spontaneous
  Country: IL (occurrence: IL)
  Receive Date: 20210226
  Receipt Date: 20210226
  Transmission Date: 20210420
  Serious: Yes (Hospitalization, Other)
  Sender: FDA-Public Use
  Company Number: IL-NOVOPROD-790380

PATIENT
  Sex: Male

DRUGS (1)
  1. VICTOZA [Suspect]
     Active Substance: LIRAGLUTIDE
     Indication: PRODUCT USED FOR UNKNOWN INDICATION
     Dosage: 0.6 MG OR 1.2 MG QD
     Route: 058

REACTIONS (4)
  - Inappropriate schedule of product administration [Unknown]
  - Myocardial infarction [Unknown]
  - Cardiac failure [Unknown]
  - Product communication issue [Unknown]

NARRATIVE: CASE EVENT DATE: 20210203
